FAERS Safety Report 9781714 (Version 1)
Quarter: 2013Q4

REPORT INFORMATION
  Report Type: Spontaneous
  Country: US (occurrence: US)
  Receive Date: 20131224
  Receipt Date: 20131224
  Transmission Date: 20140711
  Serious: Yes (Hospitalization, Other)
  Sender: FDA-Public Use
  Company Number: CHPA2013US018686

PATIENT
  Age: 75 Year
  Sex: Female

DRUGS (1)
  1. ALPHA-KERI MOISTURE RICH OIL [Suspect]
     Dosage: UNK
     Route: 061

REACTIONS (7)
  - Investigation [Unknown]
  - Transient ischaemic attack [Unknown]
  - Loss of consciousness [Unknown]
  - Hypertension [Unknown]
  - Dry skin [Not Recovered/Not Resolved]
  - Pruritus [Not Recovered/Not Resolved]
  - Skin disorder [Unknown]
